FAERS Safety Report 5969705-5 (Version None)
Quarter: 2008Q4

REPORT INFORMATION
  Report Type: 
  Country: None (occurrence: None)
  Receive Date: 20081126
  Receipt Date: 20081118
  Transmission Date: 20090506
  Serious: Yes (Disabling, Other)
  Sender: FDA-Public Use
  Company Number: FR-PFIZER INC-2008083229

PATIENT
  Sex: Male

DRUGS (6)
  1. SUTENT [Suspect]
     Indication: RENAL CANCER
     Route: 048
     Dates: start: 20070101
  2. LANSOPRAZOLE [Concomitant]
     Route: 048
  3. NEBIVOLOL [Concomitant]
     Route: 048
  4. LEVOTHYROXINE SODIUM [Concomitant]
     Route: 048
  5. INSULIN ASPART [Concomitant]
  6. DARBEPOETIN ALFA [Concomitant]

REACTIONS (2)
  - NEPHROTIC SYNDROME [None]
  - RENAL FAILURE [None]
